FAERS Safety Report 8046546-9 (Version None)
Quarter: 2012Q1

REPORT INFORMATION
  Report Type: 
  Country: None (occurrence: None)
  Receive Date: 20120113
  Receipt Date: 20120105
  Transmission Date: 20120608
  Serious: Yes (Hospitalization)
  Sender: FDA-Public Use
  Company Number: US-MERCK-1110USA01476

PATIENT
  Age: 53 Year
  Sex: Female

DRUGS (5)
  1. AMITRIPTYLINE HYDROCHLORIDE [Concomitant]
     Route: 065
  2. PERCOCET [Concomitant]
     Route: 065
  3. ZOCOR [Suspect]
     Indication: HYPERLIPIDAEMIA
     Route: 048
     Dates: start: 20080701, end: 20101001
  4. ZOCOR [Suspect]
     Indication: BLOOD CHOLESTEROL INCREASED
     Route: 048
     Dates: start: 20080701, end: 20101001
  5. LIDODERM [Concomitant]
     Route: 065

REACTIONS (18)
  - RESPIRATORY DISORDER [None]
  - MYALGIA [None]
  - FACIAL PAIN [None]
  - CHRONIC OBSTRUCTIVE PULMONARY DISEASE [None]
  - ADVERSE EVENT [None]
  - WEIGHT DECREASED [None]
  - SPINAL DISORDER [None]
  - SENSATION OF HEAVINESS [None]
  - NEUROPATHY PERIPHERAL [None]
  - FIBROMYALGIA [None]
  - ABASIA [None]
  - PAIN [None]
  - SPEECH DISORDER [None]
  - BACK PAIN [None]
  - RAYNAUD'S PHENOMENON [None]
  - AMNESIA [None]
  - ARTHRALGIA [None]
  - PHYSICAL DISABILITY [None]
